FAERS Safety Report 12485140 (Version 2)
Quarter: 2016Q3

REPORT INFORMATION
  Report Type: Spontaneous
  Country: PH (occurrence: PH)
  Receive Date: 20160621
  Receipt Date: 20160720
  Transmission Date: 20161109
  Serious: Yes (Death)
  Sender: FDA-Public Use
  Company Number: PH-NOVOPROD-496581

PATIENT
  Age: 68 Year
  Sex: Male
  Weight: 60 kg

DRUGS (1)
  1. NOVOSEVEN RT [Suspect]
     Active Substance: COAGULATION FACTOR VIIA RECOMBINANT HUMAN
     Indication: PROCEDURAL HAEMORRHAGE
     Dosage: 5 MG, QD
     Route: 042
     Dates: start: 20160609, end: 20160609

REACTIONS (2)
  - Haemorrhage [Fatal]
  - Off label use [Unknown]

NARRATIVE: CASE EVENT DATE: 20160609
